FAERS Safety Report 15262000 (Version 1)
Quarter: 2018Q3

REPORT INFORMATION
  Report Type: Spontaneous
  Country: NO (occurrence: NO)
  Receive Date: 20180809
  Receipt Date: 20180809
  Transmission Date: 20181010
  Serious: Yes (Life-Threatening, Hospitalization, Other)
  Sender: FDA-Public Use
  Company Number: NO-PFIZER INC-2018318091

PATIENT
  Age: 52 Year
  Sex: Female
  Weight: 75 kg

DRUGS (2)
  1. ARTHROTEC [Suspect]
     Active Substance: DICLOFENAC SODIUM\MISOPROSTOL
     Indication: OSTEOARTHRITIS
     Dosage: 1 DF, 1X/DAY
     Dates: start: 2016, end: 20180322
  2. CETIRIZIN BLUEFISH [Concomitant]
     Dosage: UNK
     Dates: start: 2004

REACTIONS (1)
  - Brain stem haemorrhage [Recovering/Resolving]

NARRATIVE: CASE EVENT DATE: 20180323
